FAERS Safety Report 17680479 (Version 1)
Quarter: 2020Q2

REPORT INFORMATION
  Report Type: Spontaneous
  Country: CA (occurrence: CA)
  Receive Date: 20200417
  Receipt Date: 20200417
  Transmission Date: 20200714
  Serious: Yes (Life-Threatening)
  Sender: FDA-Public Use
  Company Number: CA-TEVA-2020-CA-1223027

PATIENT
  Age: 72 Year
  Sex: Male
  Weight: 78 kg

DRUGS (8)
  1. OXALIPLATIN. [Suspect]
     Active Substance: OXALIPLATIN
     Indication: CHEMOTHERAPY
     Route: 042
  2. DIPHENHYDRAMINE HYDROCHLORIDE. [Concomitant]
     Active Substance: DIPHENHYDRAMINE HYDROCHLORIDE
     Route: 030
  3. HYDROCORTISONE. [Concomitant]
     Active Substance: HYDROCORTISONE
  4. RANITIDINE. [Concomitant]
     Active Substance: RANITIDINE
     Route: 030
  5. OXALIPLATIN. [Suspect]
     Active Substance: OXALIPLATIN
     Indication: OESOPHAGEAL CARCINOMA
     Route: 065
  6. DEXAMETHASONE. [Concomitant]
     Active Substance: DEXAMETHASONE
  7. ONDANSETRON [Concomitant]
     Active Substance: ONDANSETRON
  8. CAPECITABINE. [Concomitant]
     Active Substance: CAPECITABINE

REACTIONS (3)
  - Flushing [Recovered/Resolved]
  - Feeling hot [Recovered/Resolved]
  - Fatigue [Recovered/Resolved]
